FAERS Safety Report 5192688-5 (Version None)
Quarter: 2006Q4

REPORT INFORMATION
  Report Type: 
  Country: None (occurrence: None)
  Receive Date: 20061220
  Receipt Date: 20061205
  Transmission Date: 20070319
  Serious: Yes (Death)
  Sender: FDA-Public Use
  Company Number: 2006AL003826

PATIENT
  Sex: Female

DRUGS (8)
  1. NAPROXEN [Suspect]
     Dosage: PO
     Route: 048
     Dates: end: 20061012
  2. ADCAL-D3 [Concomitant]
  3. CO-CODAMOL [Concomitant]
  4. FRUSEMIDE [Concomitant]
  5. ISOSORBIDE [Concomitant]
  6. PERINDOPRIL ERBUMINE [Concomitant]
  7. RISPERIDONE [Concomitant]
  8. ZOPICLONE [Concomitant]

REACTIONS (2)
  - SEPSIS [None]
  - UPPER GASTROINTESTINAL HAEMORRHAGE [None]
